FAERS Safety Report 4279953-0 (Version None)
Quarter: 2004Q1

REPORT INFORMATION
  Report Type: 
  Country: None (occurrence: None)
  Receive Date: 20040127
  Receipt Date: 20040127
  Transmission Date: 20041129
  Serious: No
  Sender: FDA-Public Use
  Company Number: None

PATIENT

DRUGS (2)
  1. DILTIAZEM [Suspect]
  2. DILTIAZEM [Suspect]

REACTIONS (1)
  - MEDICATION ERROR [None]
